FAERS Safety Report 17569760 (Version 1)
Quarter: 2020Q1

REPORT INFORMATION
  Report Type: Spontaneous
  Country: JP (occurrence: JP)
  Receive Date: 20200323
  Receipt Date: 20200323
  Transmission Date: 20200409
  Serious: Yes (Other)
  Sender: FDA-Public Use
  Company Number: JP-009507513-2003JPN000788J

PATIENT
  Sex: Male

DRUGS (3)
  1. RESLIN TABLETS 25 [Suspect]
     Active Substance: TRAZODONE HYDROCHLORIDE
     Dosage: UNK
     Route: 048
     Dates: end: 202003
  2. RESLIN TABLETS 25 [Suspect]
     Active Substance: TRAZODONE HYDROCHLORIDE
     Dosage: UNK
     Route: 048
     Dates: start: 20200313
  3. BELSOMRA [Suspect]
     Active Substance: SUVOREXANT
     Indication: INSOMNIA
     Dosage: UNK
     Route: 048
     Dates: start: 20200307

REACTIONS (11)
  - Headache [Recovering/Resolving]
  - Abdominal pain upper [Recovering/Resolving]
  - Arrhythmia [Recovering/Resolving]
  - Nausea [Recovering/Resolving]
  - Head discomfort [Unknown]
  - Somnolence [Recovering/Resolving]
  - Nightmare [Unknown]
  - Malaise [Recovering/Resolving]
  - Diarrhoea [Recovering/Resolving]
  - Product use in unapproved indication [Unknown]
  - Palpitations [Unknown]

NARRATIVE: CASE EVENT DATE: 202003
